FAERS Safety Report 9511275 (Version 1)
Quarter: 2013Q3

REPORT INFORMATION
  Report Type: Spontaneous
  Country: US (occurrence: None)
  Receive Date: 20130909
  Receipt Date: 20130909
  Transmission Date: 20140515
  Serious: No
  Sender: FDA-Public Use
  Company Number: None

PATIENT
  Age: 43 Year
  Sex: Female
  Weight: 58.97 kg

DRUGS (1)
  1. FLAGYL [Suspect]
     Indication: GASTROINTESTINAL INFECTION
     Route: 048
     Dates: start: 20130827, end: 20130905

REACTIONS (12)
  - Hypoaesthesia [None]
  - Hypoaesthesia [None]
  - Paraesthesia [None]
  - Nausea [None]
  - Back pain [None]
  - Nervous system disorder [None]
  - Confusional state [None]
  - Decreased appetite [None]
  - Dysgeusia [None]
  - Tinnitus [None]
  - Nasal disorder [None]
  - Headache [None]
